FAERS Safety Report 24281611 (Version 1)
Quarter: 2024Q3

REPORT INFORMATION
  Report Type: Spontaneous
  Country: US (occurrence: US)
  Receive Date: 20240904
  Receipt Date: 20240904
  Transmission Date: 20241016
  Serious: No
  Sender: SANOFI AVENTIS
  Company Number: US-SA-2024SA253110

PATIENT
  Age: 77 Year
  Sex: Female
  Weight: 81.65 kg

DRUGS (1)
  1. DUPIXENT [Suspect]
     Active Substance: DUPILUMAB
     Indication: Product used for unknown indication
     Dosage: 300 MG, QOW
     Route: 042
     Dates: start: 20240826

REACTIONS (4)
  - Peripheral swelling [Not Recovered/Not Resolved]
  - Pain [Unknown]
  - Rash [Unknown]
  - Incorrect route of product administration [Unknown]

NARRATIVE: CASE EVENT DATE: 20240801
